FAERS Safety Report 4874007-4 (Version None)
Quarter: 2006Q1

REPORT INFORMATION
  Report Type: 
  Country: None (occurrence: None)
  Receive Date: 20060106
  Receipt Date: 20060102
  Transmission Date: 20060701
  Serious: Yes (Hospitalization)
  Sender: FDA-Public Use
  Company Number: 2006SE00042

PATIENT
  Age: 83 Year
  Sex: Male
  Weight: 64 kg

DRUGS (5)
  1. BLOPRESS [Suspect]
     Indication: ESSENTIAL HYPERTENSION
     Route: 048
     Dates: start: 20040119, end: 20040216
  2. BLOPRESS [Suspect]
     Route: 048
     Dates: start: 20040217, end: 20040725
  3. ISDN [Concomitant]
     Route: 048
  4. ASPIRIN [Concomitant]
     Route: 048
  5. SORTIS [Concomitant]
     Route: 048

REACTIONS (6)
  - CAROTID ARTERY STENOSIS [None]
  - DIZZINESS [None]
  - HYPOTENSION [None]
  - SYNCOPE [None]
  - TRANSIENT ISCHAEMIC ATTACK [None]
  - VERTIGO POSITIONAL [None]
